FAERS Safety Report 8541594-4 (Version None)
Quarter: 2012Q3

REPORT INFORMATION
  Report Type: 
  Country: None (occurrence: None)
  Receive Date: 20120726
  Receipt Date: 20110729
  Transmission Date: 20120928
  Serious: No
  Sender: FDA-Public Use
  Company Number: US-COVIDIEN/TYCO HEALTHCARE/MALLINCKRODT-T201103024

PATIENT
  Age: 23 Year
  Sex: Male

DRUGS (2)
  1. EXALGO [Suspect]
     Indication: PRODUCT USED FOR UNKNOWN INDICATION
     Dosage: 16 MG
     Dates: start: 20110608, end: 20110608
  2. EXALGO [Suspect]
     Dosage: 8 MG
     Dates: start: 20110101

REACTIONS (3)
  - INTENTIONAL DRUG MISUSE [None]
  - SOMNOLENCE [None]
  - PRODUCT TAMPERING [None]
